FAERS Safety Report 11247131 (Version 1)
Quarter: 2015Q3

REPORT INFORMATION
  Report Type: Spontaneous
  Country: US (occurrence: US)
  Receive Date: 20150708
  Receipt Date: 20150708
  Transmission Date: 20151125
  Serious: No
  Sender: FDA-Public Use
  Company Number: US-PFIZER INC-2015222790

PATIENT
  Age: 44 Year
  Sex: Female

DRUGS (5)
  1. EFFEXOR XR [Suspect]
     Active Substance: VENLAFAXINE HYDROCHLORIDE
     Indication: DEPRESSION
     Dosage: 150 MG, 1X/DAY
     Route: 048
     Dates: start: 20141027
  2. DIFLUCAN [Concomitant]
     Active Substance: FLUCONAZOLE
     Dosage: 150 MG, 1X/DAY
     Route: 048
     Dates: start: 20150127
  3. EFFEXOR XR [Suspect]
     Active Substance: VENLAFAXINE HYDROCHLORIDE
     Dosage: 300 MG, 1X/DAY ( 150 MG 2 CAPSULES)
     Route: 048
     Dates: start: 20150514
  4. LUNESTE [Concomitant]
     Dosage: 1 MG, 1X/DAY (AT BEDTIME)
     Route: 048
     Dates: start: 20141027
  5. CLOBETASOL 0.05% [Concomitant]
     Active Substance: CLOBETASOL
     Dosage: 0.05 %, 1 APPLICATION, 2X/DAY
     Route: 061
     Dates: start: 20141027

REACTIONS (2)
  - Headache [Unknown]
  - Pain [Unknown]
